FAERS Safety Report 5832433-0 (Version None)
Quarter: 2008Q3

REPORT INFORMATION
  Report Type: 
  Country: None (occurrence: None)
  Receive Date: 20080730
  Receipt Date: 20080721
  Transmission Date: 20090109
  Serious: Yes (Hospitalization)
  Sender: FDA-Public Use
  Company Number: GXKR2008GB06882

PATIENT
  Age: 84 Year
  Sex: Female

DRUGS (10)
  1. WARFARIN SODIUM [Suspect]
  2. ACYCLOVIR [Suspect]
     Indication: HERPES ZOSTER
     Dosage: 800 MG, ORAL
     Route: 048
     Dates: start: 20080702, end: 20080707
  3. BEZAFIBRATE (BEZAFIBRATE) [Concomitant]
  4. BISOPROLOL FUMARATE [Concomitant]
  5. BUMETANIDE [Concomitant]
  6. CO-DYDRAMOL (DIHYDROCODEINE BITARTRATE, PARACETAMOL) [Concomitant]
  7. DILTIAZEM [Concomitant]
  8. LANSOPRAZOLE [Concomitant]
  9. MIXTARD PORK (INSULIN PORCINE) [Concomitant]
  10. NICORANDIL (NICORANDIL) [Concomitant]

REACTIONS (2)
  - DRUG INTERACTION [None]
  - INTERNATIONAL NORMALISED RATIO INCREASED [None]
